FAERS Safety Report 16739466 (Version 1)
Quarter: 2019Q3

REPORT INFORMATION
  Report Type: Report from Study
  Country: HU (occurrence: HU)
  Receive Date: 20190826
  Receipt Date: 20190826
  Transmission Date: 20191005
  Serious: Yes (Death, Hospitalization, Other)
  Sender: FDA-Public Use
  Company Number: HU-TAIHO ONCOLOGY  INC-IM-2019-00255

PATIENT
  Age: 73 Year
  Sex: Male
  Weight: 44.5 kg

DRUGS (10)
  1. LONSURF [Suspect]
     Active Substance: TIPIRACIL HYDROCHLORIDE\TRIFLURIDINE
     Dosage: 50 MG (35 MG/M2) BID, ON DAYS 1-5 OF EACH 14-DAY CYCLE
     Route: 048
     Dates: start: 20190418, end: 20190506
  2. OXALIPLATIN. [Suspect]
     Active Substance: OXALIPLATIN
     Indication: COLON CANCER METASTATIC
     Dosage: 133.45 MG (85 MG/M2), ON DAY 1 OF EACH 14-DAY CYCLE
     Route: 042
     Dates: start: 20190111, end: 20190502
  3. FERRO-FOLSAN [Concomitant]
     Indication: ANAEMIA
     Dosage: 1 DF, BID
     Route: 048
     Dates: start: 20190426
  4. LONSURF [Suspect]
     Active Substance: TIPIRACIL HYDROCHLORIDE\TRIFLURIDINE
     Indication: COLON CANCER METASTATIC
     Dosage: 55 MG (35 MG/M2) BID, ON DAYS 1-5 OF EACH 14-DAY CYCLE
     Route: 048
     Dates: start: 20190111, end: 20190317
  5. DUROGENIC TRANSDERMAL PATCH [Concomitant]
     Indication: TUMOUR PAIN
     Dosage: 25 MICROGRAM, OTHER
     Route: 062
     Dates: start: 201806, end: 20190120
  6. RETOCRIT [Concomitant]
     Indication: ANAEMIA
     Dosage: 1 DF, EVERY 1 WEEK
     Route: 062
     Dates: start: 20190118
  7. DUROGENIC TRANSDERMAL PATCH [Concomitant]
     Dosage: 50 MICROGRAM, QD
     Route: 062
     Dates: start: 20190121
  8. MEGACE [Concomitant]
     Active Substance: MEGESTROL ACETATE
     Indication: DECREASED APPETITE
     Dosage: 1 DF, TID
     Route: 048
     Dates: start: 20190425
  9. LONSURF [Suspect]
     Active Substance: TIPIRACIL HYDROCHLORIDE\TRIFLURIDINE
     Dosage: 55 MG (35 MG/M2) BID, ON DAYS 1-5 OF EACH 14-DAY CYCLE
     Route: 048
     Dates: start: 20190401, end: 20190331
  10. BEVACIZUMAB. [Suspect]
     Active Substance: BEVACIZUMAB
     Indication: COLON CANCER METASTATIC
     Dosage: 250 MG (5 MG/KG), ON DAY 1OF EACH 14 DAY CYCLE
     Route: 042
     Dates: start: 20190111, end: 20190502

REACTIONS (3)
  - Lymphopenia [Not Recovered/Not Resolved]
  - Neutrophil count decreased [Not Recovered/Not Resolved]
  - Malignant neoplasm progression [Fatal]

NARRATIVE: CASE EVENT DATE: 20190510
